FAERS Safety Report 6604480-2 (Version None)
Quarter: 2010Q1

REPORT INFORMATION
  Report Type: 
  Country: None (occurrence: None)
  Receive Date: 20100226
  Receipt Date: 20091026
  Transmission Date: 20100710
  Serious: No
  Sender: FDA-Public Use
  Company Number: A0813616A

PATIENT
  Sex: Female

DRUGS (2)
  1. LAMOTRIGINE [Suspect]
     Indication: BIPOLAR DISORDER
     Route: 048
  2. LAMICTAL CD [Concomitant]
     Indication: BIPOLAR DISORDER
     Route: 048

REACTIONS (1)
  - ALOPECIA [None]
